FAERS Safety Report 9100708 (Version 1)
Quarter: 2013Q1

REPORT INFORMATION
  Report Type: Report from Study
  Country: BE (occurrence: BE)
  Receive Date: 20130215
  Receipt Date: 20130215
  Transmission Date: 20140127
  Serious: Yes (Hospitalization)
  Sender: FDA-Public Use
  Company Number: BE-COVIDIEN/TYCO HEALTHCARE/MALLINCKRODT-T201300822

PATIENT
  Age: 61 Year
  Sex: Female
  Weight: 51 kg

DRUGS (12)
  1. EXALGO EXTENDED RELEASE [Suspect]
     Indication: CANCER PAIN
     Dosage: 72 MG, UNK
     Route: 048
     Dates: start: 20001213
  2. EXALGO EXTENDED RELEASE [Suspect]
     Dosage: 96 MG DAILY
     Route: 048
     Dates: start: 20001220
  3. EXALGO EXTENDED RELEASE [Suspect]
     Dosage: 128 MG DAILY
     Route: 048
     Dates: start: 20010215
  4. EXALGO EXTENDED RELEASE [Suspect]
     Dosage: 192 MG DAILY
     Route: 048
     Dates: start: 20010307
  5. ATENOLOL [Concomitant]
     Indication: PROPHYLAXIS
     Dosage: 25 MG, IN 1 DAY
     Route: 048
  6. TOREMIFENE [Concomitant]
     Indication: HORMONE THERAPY
     Dosage: 60 MG, IN 1 DAY
     Route: 048
     Dates: start: 20001025
  7. ALPRAZOLAM [Concomitant]
     Indication: AGITATION
     Dosage: 0.75 MG, IN 1 DAY
     Route: 048
     Dates: start: 20001127
  8. ALPRAZOLAM [Concomitant]
     Indication: ANXIETY
  9. ALPRAZOLAM [Concomitant]
     Indication: MOOD ALTERED
  10. SERTRALINE [Concomitant]
     Indication: PROPHYLAXIS
     Dosage: 50 MG, IN 1 DAY
     Route: 048
     Dates: start: 20001223
  11. SODIUM PICOSULFATE [Concomitant]
     Indication: CONSTIPATION
     Dosage: UNK, IN 1 DAY
     Route: 048
     Dates: start: 20001205
  12. LACTULOSE [Concomitant]
     Indication: CONSTIPATION
     Dosage: 30 G, IN 1 DAY
     Route: 048
     Dates: start: 20001130

REACTIONS (3)
  - Nausea [Recovered/Resolved]
  - Vomiting [Unknown]
  - Bone pain [Unknown]
